FAERS Safety Report 13065137 (Version 2)
Quarter: 2017Q1

REPORT INFORMATION
  Report Type: Report from Study
  Country: JP (occurrence: JP)
  Receive Date: 20161227
  Receipt Date: 20170202
  Transmission Date: 20170428
  Serious: Yes (Death)
  Sender: FDA-Public Use
  Company Number: JP-TAKEDA-2014TUS009019

PATIENT
  Age: 55 Year
  Sex: Male
  Weight: 76 kg

DRUGS (16)
  1. AMITIZA [Concomitant]
     Active Substance: LUBIPROSTONE
     Indication: CONSTIPATION
     Dosage: 24 ?G, QD
     Route: 048
     Dates: start: 20130912
  2. TRAZENTA [Concomitant]
     Active Substance: LINAGLIPTIN
     Indication: DIABETES MELLITUS
     Dosage: 5 MG, QD
     Route: 048
     Dates: start: 20130913
  3. FEBUXOSTAT. [Suspect]
     Active Substance: FEBUXOSTAT
     Dosage: 10 MG, QD
     Route: 048
     Dates: start: 20130625, end: 20130722
  4. FEBUXOSTAT. [Suspect]
     Active Substance: FEBUXOSTAT
     Dosage: 5 MG, QOD
     Route: 048
     Dates: start: 20130909, end: 20131010
  5. FEBUXOSTAT. [Suspect]
     Active Substance: FEBUXOSTAT
     Indication: GOUT
     Dosage: 20 MG, QD
     Route: 048
     Dates: start: 20130430, end: 20130527
  6. GASLON [Concomitant]
     Active Substance: IRSOGLADINE MALEATE
     Indication: GASTRIC MUCOSAL LESION
     Dosage: 2 MG, BID
     Route: 048
     Dates: start: 20140902
  7. LOXONIN [Concomitant]
     Active Substance: LOXOPROFEN SODIUM
     Indication: PAIN
     Dosage: 60 MG, QD
     Route: 048
     Dates: start: 20130627, end: 20141028
  8. EQUA [Concomitant]
     Active Substance: VILDAGLIPTIN
     Indication: DIABETES MELLITUS
     Dosage: 50 MG, QD
     Route: 048
     Dates: start: 20130430, end: 20130912
  9. CLARITH [Concomitant]
     Active Substance: CLARITHROMYCIN
     Indication: HELICOBACTER INFECTION
     Dosage: 200 MG, BID
     Route: 048
     Dates: start: 20140902, end: 20140908
  10. FEBUXOSTAT. [Suspect]
     Active Substance: FEBUXOSTAT
     Dosage: 10 MG, QOD
     Route: 048
     Dates: start: 20130723, end: 20130908
  11. ARGAMATE [Suspect]
     Active Substance: CALCIUM POLYSTYRENE SULFONATE
     Indication: HYPERKALAEMIA
     Dosage: 25 G, QD
     Route: 048
     Dates: start: 20130827
  12. FEBUXOSTAT. [Suspect]
     Active Substance: FEBUXOSTAT
     Dosage: 5 MG, QD
     Route: 048
     Dates: start: 20131011, end: 20140901
  13. FEBUXOSTAT. [Suspect]
     Active Substance: FEBUXOSTAT
     Dosage: 5 MG, QOD
     Route: 048
     Dates: start: 20140902
  14. PARIET [Concomitant]
     Active Substance: RABEPRAZOLE SODIUM
     Indication: HELICOBACTER INFECTION
     Dosage: 10 MG, BID
     Route: 048
     Dates: start: 20140902
  15. SAWACILLIN [Concomitant]
     Active Substance: AMOXICILLIN
     Indication: HELICOBACTER INFECTION
     Dosage: 500 MG, BID
     Route: 048
     Dates: start: 20140902, end: 20140908
  16. ALFAROL [Concomitant]
     Active Substance: ALFACALCIDOL
     Indication: HYPERPARATHYROIDISM SECONDARY
     Dosage: 0.25 MG, QD
     Route: 048
     Dates: start: 20140902

REACTIONS (10)
  - Glycosylated haemoglobin increased [Not Recovered/Not Resolved]
  - Gastric mucosal lesion [Recovering/Resolving]
  - Death [Fatal]
  - Blood potassium abnormal [Recovering/Resolving]
  - Blood urea increased [Not Recovered/Not Resolved]
  - Constipation [Recovering/Resolving]
  - Blood creatinine increased [Not Recovered/Not Resolved]
  - Hyperkalaemia [Recovering/Resolving]
  - Pain [Recovering/Resolving]
  - Blood uric acid abnormal [Recovering/Resolving]

NARRATIVE: CASE EVENT DATE: 20130528
